FAERS Safety Report 10036096 (Version 3)
Quarter: 2014Q3

REPORT INFORMATION
  Report Type: Spontaneous
  Country: IT (occurrence: IT)
  Receive Date: 20140325
  Receipt Date: 20140908
  Transmission Date: 20150326
  Serious: Yes (Life-Threatening)
  Sender: FDA-Public Use
  Company Number: IT-PFIZER INC-2014083350

PATIENT
  Age: 41 Year
  Sex: Female
  Weight: 69 kg

DRUGS (7)
  1. DESLORATADINE. [Concomitant]
     Active Substance: DESLORATADINE
  2. PREDNISONE. [Concomitant]
     Active Substance: PREDNISONE
  3. PANTOPAN [Suspect]
     Active Substance: PANTOPRAZOLE SODIUM
     Indication: GASTROOESOPHAGEAL REFLUX DISEASE
     Dosage: 20 MG, 1X/DAY
     Route: 048
     Dates: start: 20121103, end: 20130801
  4. PRIMOLUT NOR [Concomitant]
     Dosage: 10 MG, UNK
     Dates: start: 20130701, end: 20130717
  5. SALBUTAMOL [Concomitant]
     Active Substance: ALBUTEROL
  6. SALMETEROL [Concomitant]
     Active Substance: SALMETEROL
  7. SALMETEROL XINAFOATE/FLUTICASONE PROPIONATE [Concomitant]
     Active Substance: FLUTICASONE PROPIONATE\SALMETEROL XINAFOATE

REACTIONS (12)
  - Chest pain [Recovering/Resolving]
  - Gingival bleeding [Recovering/Resolving]
  - Visual impairment [Recovering/Resolving]
  - Hyperhidrosis [Recovering/Resolving]
  - Hypersensitivity [Recovering/Resolving]
  - Myalgia [Recovering/Resolving]
  - Dyspnoea [Recovering/Resolving]
  - Vertigo [Recovering/Resolving]
  - Dysphagia [Recovering/Resolving]
  - Tachycardia [Recovering/Resolving]
  - Epistaxis [Recovering/Resolving]
  - Pharyngeal oedema [Recovering/Resolving]

NARRATIVE: CASE EVENT DATE: 20130801
